FAERS Safety Report 10023981 (Version 1)
Quarter: 2014Q1

REPORT INFORMATION
  Report Type: Spontaneous
  Country: JP (occurrence: JP)
  Receive Date: 20140320
  Receipt Date: 20140320
  Transmission Date: 20141002
  Serious: Yes (Other)
  Sender: FDA-Public Use
  Company Number: JP-ASTELLAS-2014JP002437

PATIENT
  Age: 21 Year
  Sex: Female

DRUGS (17)
  1. TACROLIMUS [Suspect]
     Indication: PROPHYLAXIS AGAINST GRAFT VERSUS HOST DISEASE
     Route: 065
  2. DAUNORUBICIN [Concomitant]
     Indication: CHRONIC MYELOID LEUKAEMIA
     Route: 065
  3. DAUNORUBICIN [Concomitant]
     Route: 065
  4. CYTARABINE [Concomitant]
     Indication: CHRONIC MYELOID LEUKAEMIA
     Route: 065
  5. DASATINIB [Concomitant]
     Indication: CHRONIC MYELOID LEUKAEMIA
     Route: 065
  6. VINCRISTINE [Concomitant]
     Indication: CHRONIC MYELOID LEUKAEMIA
     Route: 065
  7. VINCRISTINE [Concomitant]
     Route: 065
  8. PREDNISOLONE [Concomitant]
     Indication: CHRONIC MYELOID LEUKAEMIA
     Route: 065
  9. PREDNISOLONE [Concomitant]
     Route: 065
  10. CYCLOPHOSPHAMIDE [Concomitant]
     Indication: CHRONIC MYELOID LEUKAEMIA
     Route: 065
  11. L-ASPARAGINASE [Concomitant]
     Indication: CHRONIC MYELOID LEUKAEMIA
     Route: 065
  12. FLUDARABINE [Concomitant]
     Indication: PREMEDICATION
     Dosage: 180 MG/M2, UNKNOWN/D
     Route: 065
  13. BUSULFAN [Concomitant]
     Indication: PREMEDICATION
     Dosage: 6.6 MG/KG, UNKNOWN/D
     Route: 065
  14. ETOPOSIDE [Concomitant]
     Indication: PREMEDICATION
     Dosage: 30 MG/KG, UNKNOWN/D
     Route: 065
  15. ATG                                /00575401/ [Concomitant]
     Indication: PREMEDICATION
     Dosage: 2.5 MG/KG, UNK
     Route: 065
  16. METHOTREXATE [Concomitant]
     Indication: PROPHYLAXIS AGAINST GRAFT VERSUS HOST DISEASE
     Route: 065
  17. METHYLPREDNISOLONE [Concomitant]
     Indication: PROPHYLAXIS AGAINST GRAFT VERSUS HOST DISEASE
     Route: 065

REACTIONS (3)
  - Drug ineffective [Unknown]
  - Acute graft versus host disease [Unknown]
  - Chronic graft versus host disease [Unknown]
